FAERS Safety Report 21175157 (Version 1)
Quarter: 2022Q3

REPORT INFORMATION
  Report Type: Spontaneous
  Country: US (occurrence: US)
  Receive Date: 20220805
  Receipt Date: 20220805
  Transmission Date: 20221026
  Serious: No
  Sender: FDA-Public Use
  Company Number: US-ELI_LILLY_AND_COMPANY-US202207003870

PATIENT
  Age: 50 Year
  Sex: Female

DRUGS (1)
  1. TRULICITY [Suspect]
     Active Substance: DULAGLUTIDE
     Indication: Product used for unknown indication
     Dosage: UNK UNK, UNKNOWN
     Route: 065
     Dates: start: 202201

REACTIONS (6)
  - Burning sensation [Unknown]
  - Weight decreased [Unknown]
  - Gait disturbance [Unknown]
  - Pain [Unknown]
  - Sensitive skin [Unknown]
  - Gastrooesophageal reflux disease [Unknown]
